FAERS Safety Report 20107421 (Version 1)
Quarter: 2021Q4

REPORT INFORMATION
  Report Type: Spontaneous
  Country: US (occurrence: None)
  Receive Date: 20211123
  Receipt Date: 20211123
  Transmission Date: 20220303
  Serious: Yes (Hospitalization)
  Sender: FDA-Public Use
  Company Number: None

PATIENT
  Sex: Male

DRUGS (21)
  1. TEMOZOLOMIDE [Suspect]
     Active Substance: TEMOZOLOMIDE
     Indication: Brain neoplasm
     Dosage: FREQUENCY : AS DIRECTED;?
     Route: 048
     Dates: start: 20211015
  2. AMLODIPINE [Concomitant]
     Active Substance: AMLODIPINE BESYLATE
  3. ASPIRIN LOW TAB [Concomitant]
  4. ATORVASTATIN TAB 20MG [Concomitant]
  5. COLACE CAP 100MG [Concomitant]
  6. COREG TAB 12.5MG [Concomitant]
  7. DECADRON TAB 4MG [Concomitant]
  8. HUMALONG INJ [Concomitant]
  9. HYDROCHLOROT TAB [Concomitant]
  10. JANUVIA TAB 100MG [Concomitant]
  11. LANTUS INJ 100/ML [Concomitant]
  12. LISINOPRIL [Concomitant]
     Active Substance: LISINOPRIL
  13. MELATONIN [Concomitant]
     Active Substance: MELATONIN
  14. METFORMIN TAB 1000MG [Concomitant]
  15. MULTIPLE VIT TAB [Concomitant]
  16. OMEPRAZOLE [Concomitant]
  17. SOD CHLORIDE TAB 1GM [Concomitant]
  18. TYLENOL CAP 325MG [Concomitant]
  19. VIMPAT TAB 100MG [Concomitant]
  20. VIT B COMPLX TAB /VIT C [Concomitant]
  21. VITAMIN C TAB [Concomitant]

REACTIONS (1)
  - Infection [None]
